FAERS Safety Report 4357257-5 (Version None)
Quarter: 2004Q2

REPORT INFORMATION
  Report Type: 
  Country: None (occurrence: None)
  Receive Date: 20040507
  Receipt Date: 20040416
  Transmission Date: 20050107
  Serious: Yes (Hospitalization, Other)
  Sender: FDA-Public Use
  Company Number: US_010668336

PATIENT
  Age: 82 Year
  Sex: Female
  Weight: 61 kg

DRUGS (7)
  1. EVISTA [Suspect]
     Indication: OSTEOPOROSIS
     Dosage: 60 MG/1 DAY
     Dates: start: 20010419
  2. FORTEO [Suspect]
     Indication: COMPRESSION FRACTURE
     Dosage: 20 UG/1 DAY
     Dates: start: 20031205
  3. MULTIVITAMINS NOS     (MULTIVITAMINS NOS) [Concomitant]
  4. VIACTIV [Concomitant]
  5. GELATIN [Concomitant]
  6. DRY EYE THERAPY LUBRICATING EYE DROPS [Concomitant]
  7. CALCIUM [Concomitant]

REACTIONS (17)
  - ALLERGY TO PLANTS [None]
  - BODY HEIGHT DECREASED [None]
  - BURNING SENSATION [None]
  - COUGH [None]
  - EAR DISORDER [None]
  - EYE IRRITATION [None]
  - EYE REDNESS [None]
  - EYE SWELLING [None]
  - EYELID OEDEMA [None]
  - JOINT SWELLING [None]
  - LACRIMATION INCREASED [None]
  - MUSCLE CRAMP [None]
  - OEDEMA PERIPHERAL [None]
  - PHARMACEUTICAL PRODUCT COMPLAINT [None]
  - RHINORRHOEA [None]
  - SPINAL COMPRESSION FRACTURE [None]
  - THORACIC VERTEBRAL FRACTURE [None]
